FAERS Safety Report 5029858-2 (Version None)
Quarter: 2006Q2

REPORT INFORMATION
  Report Type: 
  Country: None (occurrence: None)
  Receive Date: 20060614
  Receipt Date: 20060524
  Transmission Date: 20061013
  Serious: Yes (Hospitalization, Other)
  Sender: FDA-Public Use
  Company Number: US200605005387

PATIENT
  Age: 71 Year
  Sex: Male

DRUGS (7)
  1. HUMULIN N [Suspect]
     Dates: start: 19940101
  2. HUMULIN R [Suspect]
     Dates: start: 19940101
  3. HUMALOG [Suspect]
     Dosage: AS NEEDED
     Dates: start: 20041201
  4. ACCUPRIL [Concomitant]
  5. COREG [Concomitant]
  6. ANTIHYPERTENSIVES [Concomitant]
  7. CATAPRES [Concomitant]

REACTIONS (21)
  - ANURIA [None]
  - ASTHENIA [None]
  - CATARACT [None]
  - CIRCUMSTANCE OR INFORMATION CAPABLE OF LEADING TO MEDICATION ERROR [None]
  - CLOSTRIDIAL INFECTION [None]
  - DIABETES MELLITUS INADEQUATE CONTROL [None]
  - DIALYSIS [None]
  - GOUT [None]
  - HAEMATURIA [None]
  - HAEMOGLOBIN DECREASED [None]
  - HEART RATE INCREASED [None]
  - HERNIA [None]
  - HYPERHIDROSIS [None]
  - KIDNEY INFECTION [None]
  - NEUROPATHY PERIPHERAL [None]
  - PHARMACEUTICAL PRODUCT COMPLAINT [None]
  - PROSTATE CANCER [None]
  - PROSTATIC SPECIFIC ANTIGEN INCREASED [None]
  - PYREXIA [None]
  - RENAL IMPAIRMENT [None]
  - STOMACH DISCOMFORT [None]
